FAERS Safety Report 23075082 (Version 3)
Quarter: 2024Q3

REPORT INFORMATION
  Report Type: Spontaneous
  Country: JP (occurrence: JP)
  Receive Date: 20231017
  Receipt Date: 20240715
  Transmission Date: 20241017
  Serious: Yes (Other)
  Sender: AMGEN
  Company Number: JP-AMGEN-JPNSP2023182812

PATIENT
  Age: 8 Year
  Sex: Male

DRUGS (4)
  1. BLINCYTO [Suspect]
     Active Substance: BLINATUMOMAB
     Indication: Acute lymphocytic leukaemia
     Dosage: REGULAR DOSE
     Route: 042
  2. BLINCYTO [Suspect]
     Active Substance: BLINATUMOMAB
     Dosage: REGULAR DOSE
     Route: 042
  3. LEVETIRACETAM [Concomitant]
     Active Substance: LEVETIRACETAM
  4. DEXAMETHASONE [Concomitant]
     Active Substance: DEXAMETHASONE
     Indication: Cytokine release syndrome
     Dosage: FOR 12 DAYS
     Route: 065

REACTIONS (4)
  - Graft versus host disease in skin [Recovered/Resolved]
  - Cytokine release syndrome [Recovered/Resolved]
  - Stomatitis [Recovered/Resolved]
  - Febrile neutropenia [Recovered/Resolved]
